FAERS Safety Report 9294123 (Version 2)
Quarter: 2013Q2

REPORT INFORMATION
  Report Type: Spontaneous
  Country: IT (occurrence: IT)
  Receive Date: 20130516
  Receipt Date: 20130625
  Transmission Date: 20140414
  Serious: Yes (Other)
  Sender: FDA-Public Use
  Company Number: IT-VERTEX PHARMACEUTICALS INC-2013-006086

PATIENT
  Age: 51 Year
  Sex: Male

DRUGS (4)
  1. INCIVO [Suspect]
     Indication: HEPATITIS C
     Dosage: 2250 MG, QD
     Route: 048
     Dates: start: 20130309, end: 20130502
  2. INCIVO [Suspect]
     Indication: CHRONIC HEPATITIS C
  3. REBETOL [Concomitant]
     Indication: CHRONIC HEPATITIS C
     Dosage: DOSAGE FORM: CAPSULE, HARD
     Route: 048
     Dates: start: 20130309, end: 20130502
  4. PEGINTRON [Concomitant]
     Indication: CHRONIC HEPATITIS C
     Dosage: DOSAGE FORM: SOLUTION FOR INJECTION
     Route: 058
     Dates: start: 20130309, end: 20130502

REACTIONS (2)
  - Stomatitis [Recovered/Resolved]
  - Mucosal inflammation [Unknown]
